FAERS Safety Report 7064084-7 (Version None)
Quarter: 2010Q4

REPORT INFORMATION
  Report Type: 
  Country: None (occurrence: None)
  Receive Date: 20101027
  Receipt Date: 20101014
  Transmission Date: 20110411
  Serious: Yes (Hospitalization, Other)
  Sender: FDA-Public Use
  Company Number: US-ELI_LILLY_AND_COMPANY-US201010004156

PATIENT
  Sex: Male

DRUGS (2)
  1. HUMALOG [Suspect]
     Indication: DIABETES MELLITUS
     Dosage: UNK, AS NEEDED
     Dates: start: 20000101
  2. LANTUS [Concomitant]
     Dosage: UNK, EACH EVENING

REACTIONS (5)
  - ASTHENIA [None]
  - BLINDNESS UNILATERAL [None]
  - BLOOD GLUCOSE ABNORMAL [None]
  - COORDINATION ABNORMAL [None]
  - DIABETES MELLITUS INADEQUATE CONTROL [None]
